FAERS Safety Report 6032536-4 (Version None)
Quarter: 2009Q1

REPORT INFORMATION
  Report Type: 
  Country: None (occurrence: None)
  Receive Date: 20090109
  Receipt Date: 20081203
  Transmission Date: 20090719
  Serious: No
  Sender: FDA-Public Use
  Company Number: A0759335A

PATIENT
  Age: 69 Year
  Sex: Female

DRUGS (2)
  1. TYKERB [Suspect]
     Indication: DRUG USE FOR UNKNOWN INDICATION
     Dates: start: 20081124
  2. CHEMOTHERAPY [Concomitant]
     Dates: start: 20081124

REACTIONS (5)
  - BONE PAIN [None]
  - DIARRHOEA [None]
  - PAIN [None]
  - RASH [None]
  - VOMITING [None]
